FAERS Safety Report 8497487-4 (Version None)
Quarter: 2012Q3

REPORT INFORMATION
  Report Type: 
  Country: None (occurrence: None)
  Receive Date: 20120709
  Receipt Date: 20120613
  Transmission Date: 20120928
  Serious: No
  Sender: FDA-Public Use
  Company Number: US-AMGEN-USASP2012036893

PATIENT
  Age: 30 Year
  Sex: Female

DRUGS (3)
  1. ENBREL [Suspect]
     Indication: PSORIASIS
     Dosage: 50 MG, 2 TIMES/WK
     Dates: start: 20120601
  2. ORTHO TRI-CYCLEN [Concomitant]
     Dosage: UNK
  3. ADDERALL 5 [Concomitant]
     Dosage: UNK MG, UNK

REACTIONS (1)
  - INJECTION SITE PRURITUS [None]
